FAERS Safety Report 4945479-1 (Version None)
Quarter: 2006Q1

REPORT INFORMATION
  Report Type: 
  Country: None (occurrence: None)
  Receive Date: 20060316
  Receipt Date: 20060310
  Transmission Date: 20060701
  Serious: Yes (Hospitalization)
  Sender: FDA-Public Use
  Company Number: FR-GLAXOSMITHKLINE-B0415654A

PATIENT
  Age: 85 Year
  Sex: Female
  Weight: 79 kg

DRUGS (13)
  1. AUGMENTIN '125' [Suspect]
     Indication: LUNG DISORDER
     Dosage: 2G PER DAY
     Route: 048
     Dates: start: 20060207, end: 20060210
  2. DIFFU K [Concomitant]
     Route: 065
  3. ECONAZOLE NITRATE [Concomitant]
     Route: 065
  4. PLAVIX [Concomitant]
     Route: 065
  5. TAHOR [Concomitant]
     Route: 065
  6. ATHYMIL [Concomitant]
     Route: 065
  7. PRIMPERAN TAB [Concomitant]
     Route: 065
  8. FLAGYL [Concomitant]
     Route: 065
  9. CEFTRIAXONE [Concomitant]
     Route: 065
  10. LOVENOX [Concomitant]
     Route: 065
  11. ATROVENT [Concomitant]
     Route: 065
  12. STILNOX [Concomitant]
     Route: 065
  13. TRIATEC [Concomitant]
     Route: 065

REACTIONS (5)
  - ALANINE AMINOTRANSFERASE INCREASED [None]
  - ASPARTATE AMINOTRANSFERASE INCREASED [None]
  - BLOOD ALKALINE PHOSPHATASE INCREASED [None]
  - GAMMA-GLUTAMYLTRANSFERASE INCREASED [None]
  - PROTHROMBIN LEVEL DECREASED [None]
